FAERS Safety Report 14587275 (Version 1)
Quarter: 2018Q1

REPORT INFORMATION
  Report Type: Spontaneous
  Country: US (occurrence: US)
  Receive Date: 20180228
  Receipt Date: 20180228
  Transmission Date: 20180509
  Serious: No
  Sender: FDA-Public Use
  Company Number: None

PATIENT
  Age: 24 Year
  Sex: Female
  Weight: 51.75 kg

DRUGS (2)
  1. RHOFADE [Suspect]
     Active Substance: OXYMETAZOLINE HYDROCHLORIDE
     Indication: ROSACEA
     Dosage: ?          QUANTITY:1 PEA-SIZED;?
     Route: 061
     Dates: start: 20180224, end: 20180225
  2. TAZORAC CREAM [Concomitant]

REACTIONS (5)
  - Acne [None]
  - Erythema [None]
  - Feeling hot [None]
  - Rosacea [None]
  - Skin tightness [None]

NARRATIVE: CASE EVENT DATE: 20180225
